FAERS Safety Report 7245358-3 (Version None)
Quarter: 2011Q1

REPORT INFORMATION
  Report Type: 
  Country: None (occurrence: None)
  Receive Date: 20110126
  Receipt Date: 20110114
  Transmission Date: 20110831
  Serious: No
  Sender: FDA-Public Use
  Company Number: US-PFIZER INC-US-WYE-H15018910

PATIENT
  Sex: Female
  Weight: 72.6 kg

DRUGS (1)
  1. PREMARIN [Suspect]
     Indication: MENOPAUSE
     Dosage: UNK
     Route: 048
     Dates: start: 19900101

REACTIONS (1)
  - WEIGHT INCREASED [None]
